FAERS Safety Report 8901217 (Version 1)
Quarter: 2012Q4

REPORT INFORMATION
  Report Type: 
  Country: US (occurrence: US)
  Receive Date: 20121109
  Receipt Date: 20121109
  Transmission Date: 20130627
  Serious: No
  Sender: FDA-Public Use
  Company Number: US-PFIZER INC-2012277676

PATIENT
  Sex: Male

DRUGS (5)
  1. SUTENT [Suspect]
     Dosage: cyclic
  2. PRILOSEC [Concomitant]
     Indication: GERD
     Dosage: UNK
  3. LISINOPRIL [Concomitant]
     Indication: RAISED BLOOD PRESSURE
     Dosage: UNK
  4. METFORMIN [Concomitant]
     Dosage: UNK
  5. ACTOS [Concomitant]
     Dosage: UNK

REACTIONS (3)
  - Gastrooesophageal reflux disease [Unknown]
  - Cough [Unknown]
  - Hypertension [Unknown]
